FAERS Safety Report 8269753-9 (Version None)
Quarter: 2012Q2

REPORT INFORMATION
  Report Type: 
  Country: None (occurrence: None)
  Receive Date: 20120406
  Receipt Date: 20120330
  Transmission Date: 20120825
  Serious: Yes (Other)
  Sender: FDA-Public Use
  Company Number: CC-12-017

PATIENT
  Age: 40 Year
  Sex: Female
  Weight: 160 kg

DRUGS (2)
  1. SUCRALFATE [Suspect]
     Indication: GASTRITIS
     Dosage: 10 ML 4 TIMES DAILY ORAL
     Route: 048
     Dates: start: 20120330
  2. SUCRALFATE [Suspect]
     Indication: GASTRITIS
     Dosage: 10 ML 4 TIMES DAILY ORAL
     Route: 048
     Dates: start: 20120329

REACTIONS (6)
  - DYSPNOEA [None]
  - ABDOMINAL PAIN UPPER [None]
  - FLUSHING [None]
  - CHILLS [None]
  - DYSPEPSIA [None]
  - NAUSEA [None]
